FAERS Safety Report 25638183 (Version 1)
Quarter: 2025Q3

REPORT INFORMATION
  Report Type: Spontaneous
  Country: JP (occurrence: JP)
  Receive Date: 20250804
  Receipt Date: 20250804
  Transmission Date: 20251020
  Serious: Yes (Other)
  Sender: PFIZER
  Company Number: JP-PFIZER INC-PV202500091277

PATIENT
  Age: 60 Year
  Sex: Male

DRUGS (5)
  1. AZITHROMYCIN [Interacting]
     Active Substance: AZITHROMYCIN
     Indication: Mycobacterium abscessus infection
  2. AMIKACIN [Interacting]
     Active Substance: AMIKACIN
     Indication: Mycobacterium abscessus infection
  3. IMIPENEM [Interacting]
     Active Substance: IMIPENEM
     Indication: Mycobacterium abscessus infection
  4. CLOFAZIMINE [Interacting]
     Active Substance: CLOFAZIMINE
     Indication: Mycobacterium abscessus infection
  5. TACROLIMUS [Interacting]
     Active Substance: TACROLIMUS

REACTIONS (4)
  - Drug interaction [Recovering/Resolving]
  - Immunosuppressant drug level abnormal [Recovering/Resolving]
  - Lung transplant rejection [Recovering/Resolving]
  - Off label use [Unknown]
